FAERS Safety Report 10166159 (Version 2)
Quarter: 2014Q4

REPORT INFORMATION
  Report Type: Report from Study
  Country: US (occurrence: US)
  Receive Date: 20140512
  Receipt Date: 20141229
  Transmission Date: 20150528
  Serious: Yes (Hospitalization)
  Sender: FDA-Public Use
  Company Number: US-BIOGENIDEC-2014BI040968

PATIENT
  Age: 55 Year
  Sex: Female

DRUGS (2)
  1. BABY ASPRIN [Concomitant]
     Indication: FLUSHING
  2. TECFIDERA [Suspect]
     Active Substance: DIMETHYL FUMARATE
     Indication: MULTIPLE SCLEROSIS
     Route: 048
     Dates: start: 201305

REACTIONS (8)
  - Bladder operation [Unknown]
  - Phlebitis [Unknown]
  - Pneumothorax [Not Recovered/Not Resolved]
  - Accident [Unknown]
  - Atrial fibrillation [Unknown]
  - Rib fracture [Not Recovered/Not Resolved]
  - Fall [Recovered/Resolved]
  - Cardiac disorder [Not Recovered/Not Resolved]

NARRATIVE: CASE EVENT DATE: 201402
